FAERS Safety Report 22136782 (Version 1)
Quarter: 2023Q1

REPORT INFORMATION
  Report Type: Spontaneous
  Country: US (occurrence: None)
  Receive Date: 20230323
  Receipt Date: 20230323
  Transmission Date: 20230418
  Serious: Yes (Other)
  Sender: FDA-Public Use
  Company Number: None

PATIENT
  Age: 51 Year
  Sex: Male
  Weight: 83.25 kg

DRUGS (2)
  1. VISINE RED EYE HYDRATING COMFORT [Suspect]
     Active Substance: POLYETHYLENE GLYCOL 400\TETRAHYDROZOLINE HYDROCHLORIDE
     Indication: Dry eye
     Dosage: OTHER QUANTITY : 1 DROP(S);?
     Route: 047
     Dates: start: 20230201, end: 20230323
  2. VISINE RED EYE HYDRATING COMFORT [Suspect]
     Active Substance: POLYETHYLENE GLYCOL 400\TETRAHYDROZOLINE HYDROCHLORIDE
     Indication: Ocular hyperaemia

REACTIONS (1)
  - Vision blurred [None]

NARRATIVE: CASE EVENT DATE: 20230323
